FAERS Safety Report 9203666 (Version 1)
Quarter: 2013Q1

REPORT INFORMATION
  Report Type: Spontaneous
  Country: US (occurrence: None)
  Receive Date: 20120709
  Receipt Date: 20120709
  Transmission Date: 20140127
  Serious: No
  Sender: FDA-Public Use
  Company Number: 2012HGS-003690

PATIENT
  Age: 40 Year
  Sex: Female

DRUGS (4)
  1. BENLYSTA [Suspect]
     Indication: SYSTEMIC LUPUS ERYTHEMATOSUS
     Dosage: 1 IN 14 D
     Route: 041
     Dates: start: 20120503
  2. PREDNISONE (PREDNISONE) (PREDNISONE) [Concomitant]
  3. METHOTREXATE (METHOTREXATE) (METHOTREXATE) [Concomitant]
  4. RETIN A (TRETINOIN) (TRETINOIN) [Concomitant]

REACTIONS (4)
  - Palpitations [None]
  - Malaise [None]
  - Rash generalised [None]
  - Pruritus [None]
